FAERS Safety Report 7726587-9 (Version None)
Quarter: 2011Q3

REPORT INFORMATION
  Report Type: 
  Country: None (occurrence: None)
  Receive Date: 20110902
  Receipt Date: 20110829
  Transmission Date: 20111222
  Serious: Yes (Other)
  Sender: FDA-Public Use
  Company Number: PHEH2011US01965

PATIENT
  Sex: Male

DRUGS (13)
  1. OMEPRAZOLE [Concomitant]
     Dosage: 20 MG, QD
  2. FLUOXETINE [Concomitant]
     Dosage: 20 MG, QD
  3. TEMAZEPAM [Concomitant]
     Dosage: 30 MG, QD
  4. FISH OIL [Concomitant]
     Dosage: 40000 MG, QD
  5. GLEEVEC [Suspect]
     Indication: CHRONIC MYELOID LEUKAEMIA
     Dosage: 400 MG, QD
     Route: 048
  6. ISOSORBIDE MONONITRATE [Concomitant]
     Dosage: 30 MG, QD
  7. SOTALOL HYDROCHLORIDE [Concomitant]
     Dosage: 120 MG, BID
  8. FENOFIBRATE [Concomitant]
     Dosage: 160 MG, QD
  9. CARVEDILOL [Concomitant]
     Dosage: 25 MG, BID
  10. COUMADIN [Interacting]
     Dosage: 5 MG, UNK
  11. PRAVASTATIN [Concomitant]
     Dosage: 40 MG, QD
  12. LISINOPRIL [Concomitant]
     Dosage: 20 MG, QD
  13. ZETIA [Concomitant]
     Dosage: 10 MG, QD

REACTIONS (4)
  - DRUG LEVEL DECREASED [None]
  - CARDIAC DISORDER [None]
  - NAUSEA [None]
  - MALAISE [None]
